FAERS Safety Report 9718118 (Version 1)
Quarter: 2013Q4

REPORT INFORMATION
  Report Type: Spontaneous
  Country: US (occurrence: US)
  Receive Date: 20131125
  Receipt Date: 20131125
  Transmission Date: 20140711
  Serious: No
  Sender: FDA-Public Use
  Company Number: US-VIVUS-2013V1000475

PATIENT
  Sex: Male

DRUGS (3)
  1. QSYMIA 3.75MG/23MG [Suspect]
     Indication: PRODUCT USED FOR UNKNOWN INDICATION
     Route: 048
  2. QSYMIA 7.5MG/46MG [Suspect]
     Indication: PRODUCT USED FOR UNKNOWN INDICATION
     Route: 048
     Dates: end: 20130616
  3. HEART MEDICATION [Concomitant]
     Indication: CARDIAC DISORDER

REACTIONS (4)
  - Heart rate abnormal [Recovering/Resolving]
  - Dizziness [Recovering/Resolving]
  - Mood altered [Recovering/Resolving]
  - Anxiety [Recovering/Resolving]
